FAERS Safety Report 5899080-6 (Version None)
Quarter: 2008Q3

REPORT INFORMATION
  Report Type: 
  Country: None (occurrence: None)
  Receive Date: 20080925
  Receipt Date: 20080922
  Transmission Date: 20090109
  Serious: No
  Sender: FDA-Public Use
  Company Number: US-ALLERGAN-0811227US

PATIENT
  Age: 43 Year
  Sex: Female

DRUGS (3)
  1. BOTOX COSMETIC [Suspect]
     Indication: SKIN WRINKLING
     Dosage: 40 UNITS, SINGLE
     Route: 030
     Dates: start: 20080602, end: 20080602
  2. BOTOX COSMETIC [Suspect]
     Dosage: UNK, SINGLE
     Dates: start: 20080226, end: 20080226
  3. BOTOX COSMETIC [Suspect]
     Dosage: UNK, SINGLE
     Dates: start: 20071101, end: 20071101

REACTIONS (2)
  - INFLUENZA [None]
  - PARAESTHESIA [None]
